FAERS Safety Report 7188504-2 (Version None)
Quarter: 2010Q4

REPORT INFORMATION
  Report Type: 
  Country: None (occurrence: None)
  Receive Date: 20101222
  Receipt Date: 20100721
  Transmission Date: 20110411
  Serious: No
  Sender: FDA-Public Use
  Company Number: US-AMGEN-KDL426058

PATIENT

DRUGS (10)
  1. ENBREL [Suspect]
     Indication: RHEUMATOID ARTHRITIS
     Dosage: 50 MG, QWK
     Route: 058
     Dates: start: 20100714, end: 20100721
  2. METHOTREXATE [Concomitant]
     Dosage: UNK UNK, UNK
     Dates: start: 20091130
  3. ALPRAZOLAM [Concomitant]
  4. DILTIAZEM HYDROCHLORIDE [Concomitant]
  5. GABAPENTIN [Concomitant]
     Dosage: UNK UNK, UNK
     Dates: start: 20100630
  6. HYDROCHLOROTHIAZIDE [Concomitant]
  7. ACETAMINOPHEN AND HYDROCODONE BITARTRATE [Concomitant]
  8. MELOXICAM [Concomitant]
     Dosage: UNK UNK, UNK
     Dates: start: 20100104
  9. VENLAFAXINE HCL [Concomitant]
     Dosage: UNK UNK, UNK
     Dates: start: 20100301
  10. ERGOCALCIFEROL [Concomitant]

REACTIONS (9)
  - EAR CONGESTION [None]
  - EYE PRURITUS [None]
  - HYPERSENSITIVITY [None]
  - NASAL CONGESTION [None]
  - PRURITUS [None]
  - PRURITUS GENERALISED [None]
  - RHINORRHOEA [None]
  - SINUS CONGESTION [None]
  - SWELLING FACE [None]
